FAERS Safety Report 17298905 (Version 1)
Quarter: 2020Q1

REPORT INFORMATION
  Report Type: Spontaneous
  Country: US (occurrence: US)
  Receive Date: 20200122
  Receipt Date: 20200122
  Transmission Date: 20200409
  Serious: No
  Sender: FDA-Public Use
  Company Number: US-MYLANLABS-2020M1003399

PATIENT
  Age: 53 Year
  Sex: Male

DRUGS (1)
  1. FLURAZEPAM [Suspect]
     Active Substance: FLURAZEPAM HYDROCHLORIDE
     Indication: SLEEP DISORDER
     Dosage: 1 DOSAGE FORM AT NIGHT
     Dates: end: 20200107

REACTIONS (5)
  - Anxiety [Not Recovered/Not Resolved]
  - Nightmare [Not Recovered/Not Resolved]
  - Sleep deficit [Not Recovered/Not Resolved]
  - Nervousness [Unknown]
  - Drug ineffective [Not Recovered/Not Resolved]

NARRATIVE: CASE EVENT DATE: 20200105
